FAERS Safety Report 5155516-X (Version None)
Quarter: 2006Q4

REPORT INFORMATION
  Report Type: 
  Country: None (occurrence: None)
  Receive Date: 20061114
  Receipt Date: 20061101
  Transmission Date: 20070319
  Serious: Yes (Hospitalization)
  Sender: FDA-Public Use
  Company Number: 2006SS000092

PATIENT
  Age: 34 Year
  Sex: Female
  Weight: 53.978 kg

DRUGS (10)
  1. MYOBLOC [Suspect]
     Indication: BACK PAIN
     Dates: start: 20061001, end: 20061001
  2. MYOBLOC [Suspect]
     Indication: MUSCLE SPASMS
     Dates: start: 20061001, end: 20061001
  3. MYOBLOC [Suspect]
     Indication: OFF LABEL USE
     Dates: start: 20061001, end: 20061001
  4. MYOBLOC [Suspect]
     Indication: BACK PAIN
     Dates: start: 20061027, end: 20061027
  5. MYOBLOC [Suspect]
     Indication: MUSCLE SPASMS
     Dates: start: 20061027, end: 20061027
  6. MYOBLOC [Suspect]
     Indication: OFF LABEL USE
     Dates: start: 20061027, end: 20061027
  7. BACLOFEN [Concomitant]
  8. VISTARIL /00058403/ [Concomitant]
  9. OXYCODONE HCL [Concomitant]
  10. ZANTAC [Concomitant]

REACTIONS (9)
  - ABDOMINAL PAIN UPPER [None]
  - DYSPHAGIA [None]
  - DYSPNOEA [None]
  - FATIGUE [None]
  - INFLUENZA LIKE ILLNESS [None]
  - PO2 DECREASED [None]
  - REFUSAL OF TREATMENT BY PATIENT [None]
  - SOMNOLENCE [None]
  - SPEECH DISORDER [None]
